FAERS Safety Report 17481904 (Version 1)
Quarter: 2020Q1

REPORT INFORMATION
  Report Type: Spontaneous
  Country: US (occurrence: US)
  Receive Date: 20200302
  Receipt Date: 20200302
  Transmission Date: 20200409
  Serious: Yes (Other)
  Sender: FDA-Public Use
  Company Number: US-BRISTOL-MYERS SQUIBB COMPANY-BMS-2020-015114

PATIENT
  Age: 49 Year
  Sex: Female
  Weight: 72.56 kg

DRUGS (4)
  1. CARBOCAINE [Concomitant]
     Active Substance: MEPIVACAINE HYDROCHLORIDE
     Indication: DENTAL IMPLANTATION
     Dosage: SINGLE-DOSE VIALS
     Route: 065
  2. KENALOG-10 [Suspect]
     Active Substance: TRIAMCINOLONE ACETONIDE
     Indication: TENDONITIS
     Dosage: 1 CC, ONE INJECTION
     Route: 065
     Dates: start: 20160215
  3. MEPIVACAINE [Concomitant]
     Active Substance: MEPIVACAINE HYDROCHLORIDE
     Indication: DENTAL IMPLANTATION
     Dosage: SINGLE-DOSE VIALS
     Route: 065
  4. LIDOCAINE. [Suspect]
     Active Substance: LIDOCAINE
     Indication: TENDONITIS
     Dosage: 1 CC
     Route: 065
     Dates: start: 20160215

REACTIONS (2)
  - Urticaria [Recovered/Resolved]
  - Intentional product use issue [Unknown]

NARRATIVE: CASE EVENT DATE: 20160215
